FAERS Safety Report 6874932-9 (Version None)
Quarter: 2010Q2

REPORT INFORMATION
  Report Type: 
  Country: None (occurrence: None)
  Receive Date: 20100610
  Receipt Date: 20100312
  Transmission Date: 20101027
  Serious: No
  Sender: FDA-Public Use
  Company Number: 2010SP015622

PATIENT
  Age: 39 Year
  Sex: Male

DRUGS (4)
  1. SAPHRIS [Suspect]
     Indication: BIPOLAR DISORDER
     Dosage: 10 MG;BID;
  2. CLONAZEPAM [Concomitant]
  3. ADDERALL 10 [Concomitant]
  4. AMBIEN [Concomitant]

REACTIONS (2)
  - HYPOAESTHESIA ORAL [None]
  - INSOMNIA [None]
